FAERS Safety Report 11021569 (Version 2)
Quarter: 2015Q2

REPORT INFORMATION
  Report Type: Spontaneous
  Country: FR (occurrence: FR)
  Receive Date: 20150413
  Receipt Date: 20150420
  Transmission Date: 20150821
  Serious: Yes (Other)
  Sender: FDA-Public Use
  Company Number: FR-TEVA-554015ISR

PATIENT
  Age: 88 Year
  Sex: Female

DRUGS (1)
  1. COTRIMOXAZOLE [Suspect]
     Active Substance: SULFAMETHOXAZOLE\TRIMETHOPRIM
     Dosage: STARTED A FEW DAYS EARLIER
     Route: 048
     Dates: start: 2015

REACTIONS (1)
  - Diarrhoea haemorrhagic [Unknown]
